FAERS Safety Report 8378988-6 (Version None)
Quarter: 2012Q2

REPORT INFORMATION
  Report Type: 
  Country: None (occurrence: None)
  Receive Date: 20120522
  Receipt Date: 20120522
  Transmission Date: 20120825
  Serious: Yes (Other)
  Sender: FDA-Public Use
  Company Number: None

PATIENT
  Sex: Female
  Weight: 70.3075 kg

DRUGS (1)
  1. NASACORT AQ [Suspect]
     Indication: NASAL CONGESTION
     Dosage: 2 SPRAYS @ NOSTRIL EACH DAY NOSE
     Route: 045
     Dates: start: 20050101, end: 20060101

REACTIONS (2)
  - SUBMAXILLARY GLAND ENLARGEMENT [None]
  - SJOGREN'S SYNDROME [None]
